FAERS Safety Report 5154503-5 (Version None)
Quarter: 2006Q4

REPORT INFORMATION
  Report Type: 
  Country: None (occurrence: None)
  Receive Date: 20061114
  Receipt Date: 20061101
  Transmission Date: 20070319
  Serious: Yes (Other)
  Sender: FDA-Public Use
  Company Number: 2006126344

PATIENT
  Age: 65 Year
  Sex: Male

DRUGS (4)
  1. NORVASC [Suspect]
     Indication: HYPERTENSION
     Dosage: 5 MG (DAILY), ORAL
     Route: 048
     Dates: start: 20051228
  2. TAMSULOSIN HCL [Concomitant]
  3. BLOPRESS (CANDESARTAN CILEXETIL) [Concomitant]
  4. SELBEX (TEPRENONE) [Concomitant]

REACTIONS (2)
  - BLOOD GROWTH HORMONE ABNORMAL [None]
  - PITUITARY TUMOUR BENIGN [None]
